FAERS Safety Report 5352989-4 (Version None)
Quarter: 2007Q2

REPORT INFORMATION
  Report Type: 
  Country: None (occurrence: None)
  Receive Date: 20070607
  Receipt Date: 20070523
  Transmission Date: 20071010
  Serious: Yes (Death)
  Sender: FDA-Public Use
  Company Number: 013621

PATIENT
  Sex: Male

DRUGS (1)
  1. ADDERALL(DEXTROAMPHETAMINE SACCHARATE, AMPHETAMINE ASPARTATE, DEXTROAM [Suspect]
     Indication: MUSCLE TWITCHING
     Dosage: ORAL
     Route: 048

REACTIONS (1)
  - DEATH [None]
